FAERS Safety Report 8849897 (Version 4)
Quarter: 2014Q1

REPORT INFORMATION
  Report Type: Report from Study
  Country: US (occurrence: US)
  Receive Date: 20121019
  Receipt Date: 20140226
  Transmission Date: 20141002
  Serious: Yes (Other)
  Sender: FDA-Public Use
  Company Number: US-ROCHE-1144037

PATIENT
  Age: 56 Year
  Sex: Male
  Weight: 103 kg

DRUGS (5)
  1. PEG-INTERFERON ALFA 2A [Suspect]
     Indication: CHRONIC HEPATITIS C
     Dosage: DATE OF MOST RECENT DOSE 27 SEP 2012, DOSE 90 MCG
     Route: 065
     Dates: start: 20120823
  2. RIBAVIRIN [Suspect]
     Indication: CHRONIC HEPATITIS C
     Dosage: DATE OF MOST RECENT DOSE 4 OCT 2012, DOSE 1200 MG
     Route: 065
     Dates: start: 20120823
  3. TELAPREVIR [Suspect]
     Indication: CHRONIC HEPATITIS C
     Dosage: DATE OF MOST RECENT DOSE 4 OCT 2012, DOSE 2250 MG
     Route: 065
     Dates: start: 20120823
  4. LASIX [Concomitant]
     Route: 065
  5. LASIX [Concomitant]
     Route: 065

REACTIONS (3)
  - Abdominal distension [Recovered/Resolved]
  - Ascites [Not Recovered/Not Resolved]
  - Oedema peripheral [Recovered/Resolved]
